FAERS Safety Report 23089127 (Version 1)
Quarter: 2023Q4

REPORT INFORMATION
  Report Type: Spontaneous
  Country: JP (occurrence: JP)
  Receive Date: 20231020
  Receipt Date: 20231020
  Transmission Date: 20240109
  Serious: Yes (Other)
  Sender: FDA-Public Use
  Company Number: None

PATIENT
  Sex: Male

DRUGS (6)
  1. CYCLOSPORINE [Suspect]
     Active Substance: CYCLOSPORINE
     Indication: Erythrodermic psoriasis
     Route: 065
  2. APREMILAST [Suspect]
     Active Substance: APREMILAST
     Indication: Erythrodermic psoriasis
     Route: 065
  3. ETRETINATE [Suspect]
     Active Substance: ETRETINATE
     Indication: Erythrodermic psoriasis
     Dosage: 20 MILLIGRAM, QD
     Route: 048
  4. CLOBETASOL PROPIONATE [Suspect]
     Active Substance: CLOBETASOL PROPIONATE
     Indication: Erythrodermic psoriasis
     Dosage: 15 GRAM, QW
     Route: 061
  5. CLOBETASOL PROPIONATE [Suspect]
     Active Substance: CLOBETASOL PROPIONATE
     Dosage: 5 GRAM
     Route: 061
  6. BRODALUMAB [Concomitant]
     Active Substance: BRODALUMAB
     Indication: Erythrodermic psoriasis
     Route: 065

REACTIONS (1)
  - Therapy non-responder [Unknown]
